FAERS Safety Report 24765266 (Version 1)
Quarter: 2024Q4

REPORT INFORMATION
  Report Type: Spontaneous
  Country: US (occurrence: None)
  Receive Date: 20241219
  Receipt Date: 20241219
  Transmission Date: 20250115
  Serious: Yes (Hospitalization)
  Sender: Public
  Company Number: None

PATIENT
  Age: 75 Year
  Sex: Male

DRUGS (2)
  1. METHENAMINE HIPPURATE [Suspect]
     Active Substance: METHENAMINE HIPPURATE
     Indication: Jaundice
  2. METHENAMINE HIPPURATE [Suspect]
     Active Substance: METHENAMINE HIPPURATE
     Indication: Liver function test increased

REACTIONS (9)
  - Lethargy [None]
  - Somnolence [None]
  - Mental status changes [None]
  - Urinary tract infection [None]
  - Abdominal pain lower [None]
  - Penile haemorrhage [None]
  - Decreased appetite [None]
  - Confusional state [None]
  - Liver function test increased [None]

NARRATIVE: CASE EVENT DATE: 20241017
